FAERS Safety Report 6006174-3 (Version None)
Quarter: 2008Q4

REPORT INFORMATION
  Report Type: 
  Country: None (occurrence: None)
  Receive Date: 20081216
  Receipt Date: 20081216
  Transmission Date: 20090506
  Serious: No
  Sender: FDA-Public Use
  Company Number: None

PATIENT
  Age: 30 Year
  Sex: Male
  Weight: 108.4097 kg

DRUGS (1)
  1. LITHOBID [Suspect]
     Indication: BIPOLAR II DISORDER
     Dosage: 1500 MG DAILY PO
     Route: 048
     Dates: start: 19990301, end: 20080415

REACTIONS (1)
  - THERAPEUTIC AGENT TOXICITY [None]
